FAERS Safety Report 19909471 (Version 1)
Quarter: 2021Q4

REPORT INFORMATION
  Report Type: Spontaneous
  Country: US (occurrence: US)
  Receive Date: 20211001
  Receipt Date: 20211001
  Transmission Date: 20220303
  Serious: No
  Sender: FDA-Public Use
  Company Number: US-AMARIN PHARMA, INC.-2021AMR000418

PATIENT
  Age: 68 Year
  Sex: Male
  Weight: 79.45 kg

DRUGS (7)
  1. VASCEPA [Suspect]
     Active Substance: ICOSAPENT ETHYL
     Indication: Product used for unknown indication
     Route: 048
  2. XANAX [Concomitant]
     Active Substance: ALPRAZOLAM
     Indication: Sleep disorder
  3. VITAMIN C [Concomitant]
     Active Substance: ASCORBIC ACID
     Indication: Vitamin supplementation
  4. VITAMIN D [Concomitant]
     Active Substance: VITAMIN D NOS
     Indication: Vitamin supplementation
  5. B COMPLEX VITAMIN [Concomitant]
     Indication: Vitamin supplementation
  6. BILBERRY [Concomitant]
     Active Substance: BILBERRY
     Indication: Product used for unknown indication
  7. ZINC [Concomitant]
     Active Substance: ZINC
     Indication: Product used for unknown indication

REACTIONS (2)
  - Varicose vein [Not Recovered/Not Resolved]
  - Prescribed underdose [Unknown]
